FAERS Safety Report 9775142 (Version 1)
Quarter: 2013Q4

REPORT INFORMATION
  Report Type: Spontaneous
  Country: US (occurrence: US)
  Receive Date: 20131220
  Receipt Date: 20131220
  Transmission Date: 20140711
  Serious: Yes (Other)
  Sender: FDA-Public Use
  Company Number: US-GILEAD-2010-0026401

PATIENT
  Sex: 0

DRUGS (7)
  1. VISTIDE [Suspect]
     Indication: CYTOMEGALOVIRUS CHORIORETINITIS
  2. CYCLOSPORIN [Concomitant]
  3. TPN [Concomitant]
  4. VORICONAZOLE [Concomitant]
  5. PENTAMIDINE [Concomitant]
  6. VANCOMYCIN [Concomitant]
  7. RANITIDINE [Concomitant]

REACTIONS (1)
  - Convulsion [Unknown]
